FAERS Safety Report 5636746-7 (Version None)
Quarter: 2008Q1

REPORT INFORMATION
  Report Type: 
  Country: None (occurrence: None)
  Receive Date: 20080219
  Receipt Date: 20080205
  Transmission Date: 20080703
  Serious: Yes (Other)
  Sender: FDA-Public Use
  Company Number: 2007BI012704

PATIENT
  Age: 30 Year
  Sex: Male
  Weight: 95 kg

DRUGS (3)
  1. TYSABRI [Suspect]
     Indication: RELAPSING-REMITTING MULTIPLE SCLEROSIS
     Dosage: 300 MG; QM; IV
     Route: 042
     Dates: start: 20070122, end: 20070221
  2. FLUOXETINE [Concomitant]
  3. TROSPI [Concomitant]

REACTIONS (3)
  - ANTIBODY TEST POSITIVE [None]
  - DRUG HYPERSENSITIVITY [None]
  - MALAISE [None]
